FAERS Safety Report 4731271-X (Version None)
Quarter: 2005Q3

REPORT INFORMATION
  Report Type: 
  Country: None (occurrence: None)
  Receive Date: 20050729
  Receipt Date: 20050729
  Transmission Date: 20060218
  Serious: Yes (Disabling)
  Sender: FDA-Public Use
  Company Number: None

PATIENT
  Age: 66 Year
  Sex: Male

DRUGS (3)
  1. ZOCOR [Suspect]
     Dosage: 40MG DAILY AT BEDTIME
  2. THYROID PREPARATIONS [Concomitant]
  3. HYDROCORTISONE PREPARATIONS [Concomitant]

REACTIONS (4)
  - FATIGUE [None]
  - MUSCLE ENZYME INCREASED [None]
  - MUSCULAR WEAKNESS [None]
  - PAIN [None]
